FAERS Safety Report 15724643 (Version 1)
Quarter: 2018Q4

REPORT INFORMATION
  Report Type: Spontaneous
  Country: IT (occurrence: IT)
  Receive Date: 20181214
  Receipt Date: 20181214
  Transmission Date: 20190205
  Serious: Yes (Other)
  Sender: FDA-Public Use
  Company Number: PHHY2018IT184767

PATIENT
  Age: 17 Year
  Sex: Female

DRUGS (1)
  1. CEFTRIAXONE. [Suspect]
     Active Substance: CEFTRIAXONE
     Indication: TONSILLITIS
     Route: 051

REACTIONS (3)
  - Hypersensitivity [Unknown]
  - Lip oedema [Unknown]
  - Suffocation feeling [Unknown]

NARRATIVE: CASE EVENT DATE: 20180708
